FAERS Safety Report 13652430 (Version 1)
Quarter: 2017Q2

REPORT INFORMATION
  Report Type: Spontaneous
  Country: US (occurrence: US)
  Receive Date: 20170614
  Receipt Date: 20170614
  Transmission Date: 20170830
  Serious: No
  Sender: FDA-Public Use
  Company Number: US-ROCHE-1317893

PATIENT
  Sex: Female

DRUGS (11)
  1. SYNTHROID [Concomitant]
     Active Substance: LEVOTHYROXINE SODIUM
  2. XGEVA [Concomitant]
     Active Substance: DENOSUMAB
  3. XELODA [Suspect]
     Active Substance: CAPECITABINE
     Route: 048
     Dates: start: 20131119
  4. LIPITOR [Concomitant]
     Active Substance: ATORVASTATIN CALCIUM
  5. LEVOTHYROXINE. [Concomitant]
     Active Substance: LEVOTHYROXINE
  6. LISINOPRIL. [Concomitant]
     Active Substance: LISINOPRIL
  7. METFORMIN [Concomitant]
     Active Substance: METFORMIN HYDROCHLORIDE
  8. GLYBURIDE. [Concomitant]
     Active Substance: GLYBURIDE
  9. XELODA [Suspect]
     Active Substance: CAPECITABINE
     Indication: METASTASES TO BREAST
     Dosage: 3 TABLETS, 7 DAYS ON AND 7 DAYS OFF
     Route: 048
     Dates: start: 20131114
  10. XELODA [Suspect]
     Active Substance: CAPECITABINE
     Indication: BREAST CANCER
     Dosage: 3 TWICE A DAY FOR 7 DAYS ON 7 DAYS OFF
     Route: 065
     Dates: start: 20130713
  11. CLONAZEPAM. [Concomitant]
     Active Substance: CLONAZEPAM

REACTIONS (9)
  - Drug dose omission [Unknown]
  - Nausea [Unknown]
  - Onychoclasis [Unknown]
  - Stomatitis [Unknown]
  - Onychoclasis [Not Recovered/Not Resolved]
  - Nail disorder [Unknown]
  - Fatigue [Unknown]
  - Dry skin [Unknown]
  - Chapped lips [Unknown]
